FAERS Safety Report 22649674 (Version 1)
Quarter: 2023Q2

REPORT INFORMATION
  Report Type: Spontaneous
  Country: US (occurrence: US)
  Receive Date: 20230628
  Receipt Date: 20230628
  Transmission Date: 20230722
  Serious: No
  Sender: FDA-Public Use
  Company Number: US-SA-SAC20230627000362

PATIENT
  Sex: Male

DRUGS (1)
  1. DUPIXENT [Suspect]
     Active Substance: DUPILUMAB
     Indication: Sinusitis
     Dosage: 300 MG: FREQUENCY: OTHER
     Route: 058

REACTIONS (3)
  - Nasal congestion [Recovered/Resolved]
  - Sinusitis [Unknown]
  - Product use in unapproved indication [Unknown]
